FAERS Safety Report 8544330-0 (Version None)
Quarter: 2012Q3

REPORT INFORMATION
  Report Type: 
  Country: None (occurrence: None)
  Receive Date: 20120719
  Receipt Date: 20120719
  Transmission Date: 20120928
  Serious: Yes (Other)
  Sender: FDA-Public Use
  Company Number: None

PATIENT
  Age: 49 Year
  Sex: Female
  Weight: 57.6068 kg

DRUGS (1)
  1. DEPO-MEDROL [Suspect]
     Indication: BACK PAIN
     Dosage: INJECTED - 1X EPIDURAL
     Route: 008
     Dates: start: 20120716, end: 20120717

REACTIONS (8)
  - DEPRESSION [None]
  - PYREXIA [None]
  - CONFUSIONAL STATE [None]
  - PAIN IN EXTREMITY [None]
  - HEADACHE [None]
  - DIZZINESS [None]
  - INSOMNIA [None]
  - ANXIETY [None]
